FAERS Safety Report 4429625-4 (Version None)
Quarter: 2004Q3

REPORT INFORMATION
  Report Type: 
  Country: None (occurrence: None)
  Receive Date: 20040819
  Receipt Date: 20040806
  Transmission Date: 20050211
  Serious: Yes (Hospitalization)
  Sender: FDA-Public Use
  Company Number: 2004053427

PATIENT
  Age: 82 Year
  Sex: Female
  Weight: 80.7403 kg

DRUGS (6)
  1. NEOSPORIN [Suspect]
     Indication: HEAT RASH
     Dosage: FINGER TIP AS NEEDED, TOPICAL
     Route: 061
     Dates: start: 20040501
  2. AMINO ACIDS NOS [Concomitant]
  3. HYZAAR [Concomitant]
  4. LEVOTHYROXINE SODIUM [Concomitant]
  5. ATENOLOL [Concomitant]
  6. VALSARTAN [Concomitant]

REACTIONS (8)
  - APHONIA [None]
  - CEREBRAL HAEMORRHAGE [None]
  - FEELING ABNORMAL [None]
  - LOSS OF CONSCIOUSNESS [None]
  - PAIN [None]
  - RASH MACULAR [None]
  - SPEECH DISORDER [None]
  - TOOTHACHE [None]
